FAERS Safety Report 12615389 (Version 2)
Quarter: 2016Q3

REPORT INFORMATION
  Report Type: Report from Study
  Country: US (occurrence: US)
  Receive Date: 20160802
  Receipt Date: 20160818
  Transmission Date: 20161109
  Serious: Yes (Other)
  Sender: FDA-Public Use
  Company Number: US-JNJFOC-20160725697

PATIENT
  Sex: Female

DRUGS (1)
  1. REMICADE [Suspect]
     Active Substance: INFLIXIMAB
     Indication: CROHN^S DISEASE
     Dosage: FREQUENCY: ONCE A MONTH EVERY 4 WEEKS
     Route: 042

REACTIONS (3)
  - Intestinal resection [Unknown]
  - Product use issue [Unknown]
  - Off label use [Unknown]
